FAERS Safety Report 5562627-3 (Version None)
Quarter: 2007Q4

REPORT INFORMATION
  Report Type: 
  Country: None (occurrence: None)
  Receive Date: 20071211
  Receipt Date: 20071211
  Transmission Date: 20080405
  Serious: No
  Sender: FDA-Public Use
  Company Number: None

PATIENT
  Age: 46 Year
  Sex: Male
  Weight: 86.1834 kg

DRUGS (1)
  1. CYPROHEPTADINE HCL [Suspect]
     Indication: MIGRAINE
     Dosage: 6 MG ONCE DAILY PO
     Route: 048
     Dates: start: 20071126, end: 20071209

REACTIONS (5)
  - DEPRESSION [None]
  - DRUG INEFFECTIVE [None]
  - IRRITABILITY [None]
  - MOOD ALTERED [None]
  - SUICIDAL IDEATION [None]
